FAERS Safety Report 19271929 (Version 2)
Quarter: 2024Q1

REPORT INFORMATION
  Report Type: Spontaneous
  Country: US (occurrence: US)
  Receive Date: 20210519
  Receipt Date: 20240201
  Transmission Date: 20240409
  Serious: No
  Sender: FDA-Public Use
  Company Number: US-NOVEN PHARMACEUTICALS, INC.-2021US000551

PATIENT
  Sex: Male

DRUGS (3)
  1. DAYTRANA [Suspect]
     Active Substance: METHYLPHENIDATE
     Indication: Attention deficit hyperactivity disorder
     Dosage: 30MG/9 HOURS, 1 PATCH DAILY
     Route: 062
  2. ADVIL [Concomitant]
     Active Substance: IBUPROFEN
     Indication: Headache
     Dosage: UNK, PRN
     Route: 065
  3. TYLENOL [Concomitant]
     Active Substance: ACETAMINOPHEN
     Indication: Headache
     Dosage: UNK, PRN
     Route: 065

REACTIONS (5)
  - Accidental exposure to product [Recovered/Resolved]
  - Product administration error [Not Recovered/Not Resolved]
  - Device difficult to use [Not Recovered/Not Resolved]
  - Device adhesion issue [Not Recovered/Not Resolved]
  - No adverse event [Unknown]

NARRATIVE: CASE EVENT DATE: 20210101
